FAERS Safety Report 4331901-0 (Version None)
Quarter: 2004Q2

REPORT INFORMATION
  Report Type: 
  Country: None (occurrence: None)
  Receive Date: 20040405
  Receipt Date: 20030109
  Transmission Date: 20050107
  Serious: No
  Sender: FDA-Public Use
  Company Number: US-GLAXOSMITHKLINE-A0391807A

PATIENT
  Age: 68 Year
  Sex: Female

DRUGS (3)
  1. SEREVENT [Suspect]
     Dosage: 42MCG UNKNOWN
     Route: 055
  2. COMBIVENT [Concomitant]
     Route: 065
  3. AZMACORT [Concomitant]
     Route: 065

REACTIONS (2)
  - HEART RATE INCREASED [None]
  - PHARMACEUTICAL PRODUCT COMPLAINT [None]
